FAERS Safety Report 7748114-2 (Version None)
Quarter: 2011Q3

REPORT INFORMATION
  Report Type: 
  Country: None (occurrence: None)
  Receive Date: 20110913
  Receipt Date: 20110531
  Transmission Date: 20111222
  Serious: No
  Sender: FDA-Public Use
  Company Number: US-ALLERGAN-1107409US

PATIENT
  Age: 41 Year
  Sex: Female

DRUGS (4)
  1. ACZONE [Suspect]
     Indication: ACNE
     Dosage: 1 DF, BID
     Route: 061
     Dates: start: 20110520, end: 20110526
  2. BHA [Concomitant]
     Indication: ACNE
     Dosage: UNK
     Route: 061
  3. FINACEA [Concomitant]
     Indication: ACNE
     Dosage: UNK
     Route: 061
  4. BENZOYL PEROXIDE [Concomitant]
     Indication: ACNE
     Route: 061

REACTIONS (4)
  - PRURITUS [None]
  - DERMATITIS [None]
  - BURNING SENSATION [None]
  - ERYTHEMA [None]
